FAERS Safety Report 8166404-9 (Version None)
Quarter: 2012Q1

REPORT INFORMATION
  Report Type: 
  Country: None (occurrence: None)
  Receive Date: 20120227
  Receipt Date: 20110713
  Transmission Date: 20120608
  Serious: No
  Sender: FDA-Public Use
  Company Number: US-MYLANLABS-2011S1014812

PATIENT
  Age: 29 Year
  Sex: Female

DRUGS (1)
  1. AMNESTEEM [Suspect]
     Indication: GLIOBLASTOMA
     Dates: start: 20110401

REACTIONS (4)
  - GLIOBLASTOMA [None]
  - HYPERCHOLESTEROLAEMIA [None]
  - DRUG INEFFECTIVE FOR UNAPPROVED INDICATION [None]
  - CONFUSIONAL STATE [None]
